FAERS Safety Report 8740409 (Version 2)
Quarter: 2013Q4

REPORT INFORMATION
  Report Type: Spontaneous
  Country: US (occurrence: US)
  Receive Date: 20120823
  Receipt Date: 20131031
  Transmission Date: 20140711
  Serious: No
  Sender: FDA-Public Use
  Company Number: US-009507513-2012SP034067

PATIENT
  Age: 8 Year
  Sex: Male

DRUGS (1)
  1. ASMANEX [Suspect]
     Indication: ASTHMA
     Dosage: 1 DF, QD
     Route: 055
     Dates: end: 20120618

REACTIONS (4)
  - Wheezing [Recovering/Resolving]
  - Cough [Recovering/Resolving]
  - Vomiting [Unknown]
  - Overdose [Recovered/Resolved]
